FAERS Safety Report 16467062 (Version 2)
Quarter: 2019Q3

REPORT INFORMATION
  Report Type: Spontaneous
  Country: US (occurrence: US)
  Receive Date: 20190624
  Receipt Date: 20190801
  Transmission Date: 20191004
  Serious: Yes (Hospitalization, Other)
  Sender: FDA-Public Use
  Company Number: US-CIPLA LTD.-2019US04603

PATIENT

DRUGS (8)
  1. IRINOTECAN [Suspect]
     Active Substance: IRINOTECAN
     Indication: METASTASES TO LIVER
     Dosage: UNK, DOSE DECREASED, CYCLICAL
     Route: 065
     Dates: start: 2016, end: 201608
  2. FOLINIC ACID [Suspect]
     Active Substance: LEUCOVORIN
     Indication: DUCTAL ADENOCARCINOMA OF PANCREAS
     Dosage: UNK, CYCLICAL
     Route: 065
     Dates: start: 201603, end: 2016
  3. OXALIPLATIN. [Suspect]
     Active Substance: OXALIPLATIN
     Indication: METASTASES TO LIVER
     Dosage: UNK, DOSE DECREASED, CYCLICAL
     Route: 065
     Dates: start: 2016, end: 201608
  4. OXALIPLATIN. [Suspect]
     Active Substance: OXALIPLATIN
     Indication: DUCTAL ADENOCARCINOMA OF PANCREAS
     Dosage: UNK, CYCLICAL
     Route: 065
     Dates: start: 201603, end: 2016
  5. FLUOROURACIL. [Suspect]
     Active Substance: FLUOROURACIL
     Indication: DUCTAL ADENOCARCINOMA OF PANCREAS
     Dosage: UNK, CYCLICAL
     Route: 065
     Dates: start: 201603, end: 2016
  6. IRINOTECAN [Suspect]
     Active Substance: IRINOTECAN
     Indication: DUCTAL ADENOCARCINOMA OF PANCREAS
     Dosage: UNK, CYCLICAL
     Route: 065
     Dates: start: 201603, end: 2016
  7. FLUOROURACIL. [Suspect]
     Active Substance: FLUOROURACIL
     Indication: METASTASES TO LIVER
     Dosage: UNK, DOSE DECREASED, CYCLICAL
     Route: 065
     Dates: start: 2016, end: 201608
  8. FOLINIC ACID [Suspect]
     Active Substance: LEUCOVORIN
     Indication: METASTASES TO LIVER
     Dosage: UNK, DOSE DECREASED, CYCLICAL
     Route: 065
     Dates: start: 2016, end: 201608

REACTIONS (10)
  - Delirium [Unknown]
  - Clostridium difficile colitis [Unknown]
  - Hypotension [Unknown]
  - Diarrhoea [Unknown]
  - Dehydration [Unknown]
  - Mucosal inflammation [Unknown]
  - Nausea [Unknown]
  - Syncope [Unknown]
  - Toxicity to various agents [Unknown]
  - Vomiting [Unknown]

NARRATIVE: CASE EVENT DATE: 2016
